FAERS Safety Report 9199116 (Version 3)
Quarter: 2013Q4

REPORT INFORMATION
  Report Type: Spontaneous
  Country: US (occurrence: US)
  Receive Date: 20130329
  Receipt Date: 20131121
  Transmission Date: 20140711
  Serious: Yes (Life-Threatening, Hospitalization, Other)
  Sender: FDA-Public Use
  Company Number: US-009507513-1303USA013198

PATIENT
  Age: 34 Year
  Sex: Female
  Weight: 92.7 kg

DRUGS (2)
  1. NUVARING [Suspect]
     Indication: CONTRACEPTION
     Dosage: UNK
     Route: 067
     Dates: start: 201302
  2. LISINOPRIL [Concomitant]

REACTIONS (4)
  - Pulmonary embolism [Recovered/Resolved]
  - Upper-airway cough syndrome [Unknown]
  - Sputum purulent [Unknown]
  - Hypophagia [Unknown]
